FAERS Safety Report 21707351 (Version 2)
Quarter: 2022Q4

REPORT INFORMATION
  Report Type: Spontaneous
  Country: DE (occurrence: DE)
  Receive Date: 20221209
  Receipt Date: 20221229
  Transmission Date: 20230113
  Serious: Yes (Other)
  Sender: FDA-Public Use
  Company Number: DE-MALLINCKRODT-T202206394

PATIENT
  Sex: Male

DRUGS (2)
  1. UVADEX [Suspect]
     Active Substance: METHOXSALEN
     Indication: Chronic graft versus host disease in intestine
     Dosage: UNK, EXTRACORPOREAL
     Route: 050
  2. UVADEX [Suspect]
     Active Substance: METHOXSALEN
     Indication: Chronic graft versus host disease in skin

REACTIONS (4)
  - Malignant melanoma [Not Recovered/Not Resolved]
  - Tumour excision [Unknown]
  - Contraindicated product administered [Unknown]
  - Product use in unapproved indication [Unknown]

NARRATIVE: CASE EVENT DATE: 20221021
